FAERS Safety Report 8986996 (Version 1)
Quarter: 2012Q4

REPORT INFORMATION
  Report Type: 
  Country: GB (occurrence: GB)
  Receive Date: 20121226
  Receipt Date: 20121226
  Transmission Date: 20130627
  Serious: Yes (Hospitalization)
  Sender: FDA-Public Use
  Company Number: PHHY2012GB118184

PATIENT
  Age: 64 Year
  Sex: Male

DRUGS (16)
  1. VINCRISTINE [Suspect]
     Indication: DIFFUSE LARGE B-CELL LYMPHOMA
     Dates: start: 20090929
  2. DOXORUBICIN [Suspect]
     Indication: DIFFUSE LARGE B-CELL LYMPHOMA
     Dates: start: 20090929
  3. PREDNISOLONE SANDOZ [Suspect]
     Indication: DIFFUSE LARGE B-CELL LYMPHOMA
     Dosage: 100 mg, QD
     Dates: start: 20090922
  4. PREDNISOLONE SANDOZ [Suspect]
     Route: 065
     Dates: start: 20090929
  5. CYCLOPHOSPHAMIDE [Suspect]
     Indication: DIFFUSE LARGE B-CELL LYMPHOMA
     Route: 065
     Dates: start: 20090929
  6. CLEXANE [Suspect]
     Dosage: 110 mg, QD
     Dates: start: 20091019
  7. RITUXIMAB [Suspect]
     Indication: DIFFUSE LARGE B-CELL LYMPHOMA
     Dates: start: 20090929
  8. AVASTIN [Suspect]
     Indication: DIFFUSE LARGE B-CELL LYMPHOMA
     Dates: start: 20090929
  9. DEFLAZACORT [Concomitant]
     Indication: MOUTH ULCERATION
     Dates: start: 20091016
  10. LANSOPRAZOLE [Concomitant]
     Dosage: 15 mg, QD
  11. LEVOTHYROXINE [Concomitant]
     Dosage: 150 mg, BID
  12. RASBURICASE [Concomitant]
     Dosage: 105 mg, QD
     Dates: start: 20090923
  13. MOVICOL [Concomitant]
     Indication: CONSTIPATION
     Dates: start: 20091016
  14. DOMPERIDONE [Concomitant]
  15. CO-CODAMOL [Concomitant]
  16. ALLOPURINOL [Concomitant]
     Dosage: 100 mg, QD
     Dates: start: 20090922

REACTIONS (1)
  - Epistaxis [Recovered/Resolved]
